FAERS Safety Report 20504091 (Version 3)
Quarter: 2022Q1

REPORT INFORMATION
  Report Type: Report from Study
  Country: JP (occurrence: JP)
  Receive Date: 20220222
  Receipt Date: 20220314
  Transmission Date: 20220423
  Serious: Yes (Hospitalization)
  Sender: FDA-Public Use
  Company Number: JP-ONO-2022JP004369

PATIENT
  Age: 26 Year
  Sex: Male
  Weight: 65.5 kg

DRUGS (22)
  1. ENCORAFENIB [Suspect]
     Active Substance: ENCORAFENIB
     Indication: Rectal cancer
     Dosage: 300 MG, EVERYDAY
     Route: 048
     Dates: start: 20220208, end: 20220210
  2. BINIMETINIB [Suspect]
     Active Substance: BINIMETINIB
     Indication: Rectal cancer
     Dosage: 45 MG, Q12H
     Route: 048
     Dates: start: 20220208, end: 20220210
  3. CETUXIMAB [Suspect]
     Active Substance: CETUXIMAB
     Indication: Rectal cancer
     Dosage: 400 MG/M2, QW
     Route: 041
     Dates: start: 20220208, end: 20220208
  4. CLOSTRIDIUM BUTYRICUM SPORES STRAIN M-55 [Concomitant]
     Active Substance: CLOSTRIDIUM BUTYRICUM SPORES STRAIN M-55
     Indication: Prophylaxis against diarrhoea
     Dosage: 1 G, Q8H
     Route: 048
  5. ZINC ACETATE [Concomitant]
     Active Substance: ZINC ACETATE
     Indication: Prophylaxis
     Dosage: 25 MG, Q12H
     Route: 048
     Dates: start: 20210607
  6. FEXOFENADINE HYDROCHLORIDE [Concomitant]
     Active Substance: FEXOFENADINE HYDROCHLORIDE
     Indication: Seasonal allergy
     Dosage: 60 MG, Q12H
     Route: 048
  7. ACETAMINOPHEN [Concomitant]
     Active Substance: ACETAMINOPHEN
     Indication: Cancer pain
     Dosage: 700 MG, Q8H
     Route: 042
     Dates: start: 20220210
  8. OXYCODONE HYDROCHLORIDE [Concomitant]
     Active Substance: OXYCODONE HYDROCHLORIDE
     Indication: Cancer pain
     Dosage: 36 MG, EVERYDAY
     Route: 042
     Dates: start: 20220210
  9. OXYCODONE HYDROCHLORIDE [Concomitant]
     Active Substance: OXYCODONE HYDROCHLORIDE
     Dosage: 24 MG, EVERYDAY
     Route: 042
     Dates: start: 20220210
  10. DEXAMETHASONE [Concomitant]
     Active Substance: DEXAMETHASONE
     Indication: Stomatitis
     Dosage: UNK, PRN
     Route: 061
     Dates: start: 20220208
  11. AMINO ACIDS\DEXTROSE\ELECTROLYTES NOS\VITAMINS [Concomitant]
     Active Substance: AMINO ACIDS\DEXTROSE\ELECTROLYTES NOS\VITAMINS
     Indication: Enterocolitis
     Dosage: 1000 ML, EVERYDAY
     Route: 042
     Dates: start: 20220210
  12. OMEPRAZOLE SODIUM [Concomitant]
     Active Substance: OMEPRAZOLE SODIUM
     Indication: Gastritis prophylaxis
     Dosage: 20 MG, Q12H
     Route: 042
     Dates: start: 20220210
  13. MEROPENEM [Concomitant]
     Active Substance: MEROPENEM
     Indication: Enterocolitis
     Dosage: 1 G, Q8H
     Route: 042
     Dates: start: 20220210
  14. OXYCODONE HYDROCHLORIDE [Concomitant]
     Active Substance: OXYCODONE HYDROCHLORIDE
     Indication: Cancer pain
     Dosage: 20 MG, Q12H
     Route: 048
     Dates: start: 20220210
  15. LANSOPRAZOLE [Concomitant]
     Active Substance: LANSOPRAZOLE
     Indication: Gastritis prophylaxis
     Dosage: 15 MG, EVERYDAY
     Route: 048
  16. MINOCYCLINE HYDROCHLORIDE [Concomitant]
     Active Substance: MINOCYCLINE HYDROCHLORIDE
     Indication: Skin disorder prophylaxis
     Dosage: 100 MG, Q12H
     Route: 048
     Dates: start: 20201104
  17. OXYCODONE HYDROCHLORIDE [Concomitant]
     Active Substance: OXYCODONE HYDROCHLORIDE
     Indication: Cancer pain
     Dosage: 5 MG, PRN
     Route: 048
     Dates: start: 20220210
  18. ACETAMINOPHEN [Concomitant]
     Active Substance: ACETAMINOPHEN
     Indication: Cancer pain
     Dosage: 500 MG, Q6H
     Route: 048
  19. LOXOPROFEN SODIUM [Concomitant]
     Active Substance: LOXOPROFEN SODIUM
     Indication: Cancer pain
     Dosage: 60 MG, Q8H
     Route: 048
  20. CHLORPHENIRAMINE MALEATE [Concomitant]
     Active Substance: CHLORPHENIRAMINE MALEATE
     Indication: Prophylaxis
     Dosage: 5 MG, EVERYDAY
     Route: 042
     Dates: start: 20220208
  21. DEXAMETHASONE SODIUM PHOSPHATE [Concomitant]
     Active Substance: DEXAMETHASONE SODIUM PHOSPHATE
     Indication: Prophylaxis
     Dosage: 6.6 MG, EVERYDAY
     Route: 042
     Dates: start: 20220208
  22. BUTYLSCOPOLAMINE BROMIDE [Concomitant]
     Active Substance: BUTYLSCOPOLAMINE BROMIDE
     Indication: Abdominal pain
     Dosage: 10 MG, PRN
     Route: 048
     Dates: start: 20220210, end: 20220210

REACTIONS (2)
  - Pancreatitis [Recovered/Resolved]
  - Colitis [Recovered/Resolved]

NARRATIVE: CASE EVENT DATE: 20220214
